FAERS Safety Report 6223959-9 (Version None)
Quarter: 2009Q2

REPORT INFORMATION
  Report Type: 
  Country: None (occurrence: None)
  Receive Date: 20090612
  Receipt Date: 20090304
  Transmission Date: 20091009
  Serious: No
  Sender: FDA-Public Use
  Company Number: US-ABBOTT-09P-163-0560959-00

PATIENT
  Sex: Female
  Weight: 70.37 kg

DRUGS (5)
  1. HUMIRA [Suspect]
     Indication: PSORIATIC ARTHROPATHY
     Route: 058
     Dates: start: 20080901
  2. INDOMETHACIN [Concomitant]
     Indication: PSORIATIC ARTHROPATHY
  3. NEXIUM [Concomitant]
     Indication: DYSPEPSIA
  4. FOLIC ACID [Concomitant]
     Indication: PSORIATIC ARTHROPATHY
  5. TYLENOL (CAPLET) [Concomitant]
     Indication: PSORIATIC ARTHROPATHY

REACTIONS (2)
  - FATIGUE [None]
  - PAIN [None]
